FAERS Safety Report 6310495-4 (Version None)
Quarter: 2009Q3

REPORT INFORMATION
  Report Type: 
  Country: None (occurrence: None)
  Receive Date: 20090811
  Receipt Date: 20090512
  Transmission Date: 20100115
  Serious: Yes (Other)
  Sender: FDA-Public Use
  Company Number: 1000006198

PATIENT

DRUGS (3)
  1. SAVELLA [Suspect]
     Dosage: 12.5 MG (12.5 MG, 1 IN 1 D),ORAL : 25 MG (12.5 MG, 2 IN 1 D),ORAL
     Route: 048
     Dates: start: 20090504, end: 20090504
  2. SAVELLA [Suspect]
     Dosage: 12.5 MG (12.5 MG, 1 IN 1 D),ORAL : 25 MG (12.5 MG, 2 IN 1 D),ORAL
     Route: 048
     Dates: start: 20090505
  3. PAXIL [Suspect]
     Dosage: 40 MG (40 MG, 1 IN 1 D),ORAL
     Route: 048

REACTIONS (1)
  - SEROTONIN SYNDROME [None]
